FAERS Safety Report 4608628-0 (Version None)
Quarter: 2005Q1

REPORT INFORMATION
  Report Type: 
  Country: None (occurrence: None)
  Receive Date: 20050311
  Receipt Date: 20050311
  Transmission Date: 20050727
  Serious: Yes (Hospitalization, Disabling)
  Sender: FDA-Public Use
  Company Number: None

PATIENT
  Age: 40 Year
  Sex: Female
  Weight: 115.6 kg

DRUGS (5)
  1. CELEBREX [Suspect]
     Indication: BACK PAIN
     Dosage: 200MG DAILY ORAL
     Route: 048
     Dates: start: 20031125, end: 20041125
  2. LIPITOR [Concomitant]
  3. DIOVAN [Concomitant]
  4. PROZAC [Concomitant]
  5. CALCIUM WITH VITAMIN D [Concomitant]

REACTIONS (4)
  - ASTHENIA [None]
  - HEMIPARESIS [None]
  - SENSORY DISTURBANCE [None]
  - SPEECH DISORDER [None]
